FAERS Safety Report 20416266 (Version 8)
Quarter: 2022Q1

REPORT INFORMATION
  Report Type: Report from Study
  Country: US (occurrence: US)
  Receive Date: 20220202
  Receipt Date: 20220317
  Transmission Date: 20220423
  Serious: No
  Sender: FDA-Public Use
  Company Number: NVSC2022US021737

PATIENT
  Sex: Female

DRUGS (1)
  1. ENTRESTO [Suspect]
     Active Substance: SACUBITRIL\VALSARTAN
     Indication: Product used for unknown indication
     Dosage: 1 DOSAGE FORM, BID
     Route: 048
     Dates: start: 20220118

REACTIONS (6)
  - Malaise [Unknown]
  - Anxiety [Unknown]
  - Joint swelling [Unknown]
  - Peripheral swelling [Unknown]
  - Asthenia [Unknown]
  - Fatigue [Not Recovered/Not Resolved]
